FAERS Safety Report 25382625 (Version 3)
Quarter: 2025Q2

REPORT INFORMATION
  Report Type: Report from Study
  Country: EG (occurrence: EG)
  Receive Date: 20250601
  Receipt Date: 20250619
  Transmission Date: 20250716
  Serious: Yes (Hospitalization, Other)
  Sender: ABBVIE
  Company Number: EG-ABBVIE-6305220

PATIENT
  Age: 26 Year
  Sex: Female

DRUGS (9)
  1. HUMIRA [Suspect]
     Active Substance: ADALIMUMAB
     Indication: Rheumatoid arthritis
     Dosage: 1 SYRINGE, 40 MG? FREQUENCY TEXT: EVERY 15 DAYS
     Route: 058
     Dates: start: 202410, end: 20250506
  2. HUMIRA [Suspect]
     Active Substance: ADALIMUMAB
     Dosage: 1 SYRINGE, EVERY 15 DAYS 40 MG
     Route: 058
     Dates: start: 20250526
  3. HUMIRA [Suspect]
     Active Substance: ADALIMUMAB
     Dosage: 2 SYRINGE, 40 MG
     Route: 058
  4. VITAMIN D [Concomitant]
     Active Substance: VITAMIN D NOS
     Indication: Product used for unknown indication
  5. IRON [Concomitant]
     Active Substance: IRON
     Indication: Product used for unknown indication
  6. CORTISONE [Concomitant]
     Active Substance: CORTISONE
     Indication: Product used for unknown indication
     Route: 048
  7. CORTISONE [Concomitant]
     Active Substance: CORTISONE
     Indication: Product used for unknown indication
     Route: 048
  8. CORTISONE [Concomitant]
     Active Substance: CORTISONE
     Indication: Product used for unknown indication
     Route: 048
  9. LEFLUNOMIDE [Suspect]
     Active Substance: LEFLUNOMIDE
     Indication: Product used for unknown indication
     Route: 065

REACTIONS (6)
  - Fatigue [Unknown]
  - Back pain [Unknown]
  - Movement disorder [Unknown]
  - Anaemia [Unknown]
  - Inflammation [Unknown]
  - Spondylitis [Unknown]

NARRATIVE: CASE EVENT DATE: 20250101
